FAERS Safety Report 7482396-X (Version None)
Quarter: 2011Q1

REPORT INFORMATION
  Report Type: 
  Country: None (occurrence: None)
  Receive Date: 20110308
  Receipt Date: 20100811
  Transmission Date: 20110831
  Serious: Yes (Other)
  Sender: FDA-Public Use
  Company Number: THYM-1001774

PATIENT
  Age: 60 Year
  Sex: Female

DRUGS (6)
  1. SEPTRA DS [Concomitant]
  2. FLUCONAZOLE [Concomitant]
  3. VALCYTE [Concomitant]
  4. THYMOGLOBULIN [Suspect]
     Indication: KIDNEY TRANSPLANT REJECTION
     Dosage: INTRAVENOUS
     Route: 042
     Dates: start: 20100513, end: 20100518
  5. MYFORTIC [Concomitant]
  6. CIPRO [Concomitant]

REACTIONS (1)
  - LEUKOPENIA [None]
